FAERS Safety Report 10879886 (Version 1)
Quarter: 2015Q1

REPORT INFORMATION
  Report Type: Spontaneous
  Country: US (occurrence: US)
  Receive Date: 20150302
  Receipt Date: 20150302
  Transmission Date: 20150721
  Serious: Yes (Other)
  Sender: FDA-Public Use
  Company Number: US-PFIZER INC-2015068851

PATIENT
  Sex: Male
  Weight: 122 kg

DRUGS (7)
  1. TIKOSYN [Suspect]
     Active Substance: DOFETILIDE
     Indication: ATRIAL FIBRILLATION
     Dosage: 500 ?G, DAILY
     Route: 048
     Dates: start: 20150122
  2. ATENOLOL. [Concomitant]
     Active Substance: ATENOLOL
  3. TIKOSYN [Suspect]
     Active Substance: DOFETILIDE
     Dosage: UNK
     Dates: start: 20141208
  4. LISINOPRIL. [Concomitant]
     Active Substance: LISINOPRIL
  5. DIGOXIN. [Concomitant]
     Active Substance: DIGOXIN
     Dosage: 250 ?G, DAILY
  6. XARELTO [Concomitant]
     Active Substance: RIVAROXABAN
  7. DILTIAZEM [Concomitant]
     Active Substance: DILTIAZEM

REACTIONS (1)
  - Drug ineffective [Unknown]
